FAERS Safety Report 7373611-1 (Version None)
Quarter: 2011Q1

REPORT INFORMATION
  Report Type: 
  Country: None (occurrence: None)
  Receive Date: 20110325
  Receipt Date: 20101004
  Transmission Date: 20110831
  Serious: Yes (Hospitalization, Other)
  Sender: FDA-Public Use
  Company Number: US-BAYER-201018316NA

PATIENT
  Sex: Female
  Weight: 73.016 kg

DRUGS (2)
  1. YAZ [Suspect]
     Dosage: UNK
     Dates: start: 20080901, end: 20090401
  2. YAZ [Suspect]
     Indication: CONTRACEPTION
     Dosage: UNK UNK, UNK
     Route: 048
     Dates: start: 20071001, end: 20080401

REACTIONS (7)
  - MENTAL DISORDER [None]
  - ABDOMINAL PAIN UPPER [None]
  - CHOLECYSTITIS ACUTE [None]
  - PANCREATITIS [None]
  - CHOLELITHIASIS [None]
  - PANCREATITIS ACUTE [None]
  - GALLBLADDER INJURY [None]
